FAERS Safety Report 8529539-4 (Version None)
Quarter: 2012Q3

REPORT INFORMATION
  Report Type: 
  Country: None (occurrence: None)
  Receive Date: 20120723
  Receipt Date: 20120713
  Transmission Date: 20120928
  Serious: Yes (Other)
  Sender: FDA-Public Use
  Company Number: FR-JNJFOC-20120708083

PATIENT

DRUGS (5)
  1. VELCADE [Suspect]
     Indication: MANTLE CELL LYMPHOMA
     Dosage: ON DAYS 1, 4, 8 AND 11
     Route: 065
  2. CHLORAMBUCIL [Suspect]
     Indication: MANTLE CELL LYMPHOMA
     Dosage: FROM DAY 20 TO 29.
     Route: 065
  3. DEXAMETHASONE [Suspect]
     Indication: MANTLE CELL LYMPHOMA
     Dosage: DAY 1 TO 4
     Route: 065
  4. RITUXIMAB [Suspect]
     Indication: MANTLE CELL LYMPHOMA
     Dosage: ON DAY 1 (AND DAY 8 OF CYCLE 1)
     Route: 065
  5. DOXORUBICIN HYDROCHLORIDE [Suspect]
     Indication: MANTLE CELL LYMPHOMA
     Dosage: AS A CONTINUOUS INFUSION FROM DAY 1 TO 4
     Route: 042

REACTIONS (2)
  - PULMONARY TOXICITY [None]
  - LUNG DISORDER [None]
